FAERS Safety Report 14825681 (Version 1)
Quarter: 2018Q2

REPORT INFORMATION
  Report Type: Spontaneous
  Country: CZ (occurrence: CZ)
  Receive Date: 20180430
  Receipt Date: 20180430
  Transmission Date: 20180711
  Serious: Yes (Hospitalization, Other)
  Sender: FDA-Public Use
  Company Number: CZ-VELOXIS PHARMACEUTICALS-2046793

PATIENT
  Age: 57 Year
  Sex: Male

DRUGS (18)
  1. AMLODIPINE [Concomitant]
     Active Substance: AMLODIPINE BESYLATE
  2. STACYL [Concomitant]
  3. MYCLAUSEN [Concomitant]
  4. APO-METOPROLOL [Concomitant]
     Active Substance: METOPROLOL
  5. ALGIFEN [Concomitant]
  6. RILMENIDINE [Concomitant]
     Active Substance: RILMENIDINE
  7. ROCALTROL [Concomitant]
     Active Substance: CALCITRIOL
  8. VALGANCICLOVIR. [Concomitant]
     Active Substance: VALGANCICLOVIR
  9. ENVARSUS XR [Suspect]
     Active Substance: TACROLIMUS
     Indication: PROPHYLAXIS AGAINST TRANSPLANT REJECTION
     Route: 048
  10. FURON [Concomitant]
     Active Substance: FUROSEMIDE
  11. HUMULIN R [Concomitant]
     Active Substance: INSULIN HUMAN
  12. HUMULIN N [Concomitant]
     Active Substance: INSULIN HUMAN
  13. LANZUL [Concomitant]
     Active Substance: LANSOPRAZOLE
  14. BISEPTOL [Concomitant]
     Active Substance: SULFAMETHOXAZOLE\TRIMETHOPRIM
  15. PREDNISONE. [Concomitant]
     Active Substance: PREDNISONE
  16. ATORIS [Concomitant]
     Active Substance: ATORVASTATIN CALCIUM
  17. CALCIUM CARBONATE. [Concomitant]
     Active Substance: CALCIUM CARBONATE
  18. EBRANTIL [Concomitant]
     Active Substance: URAPIDIL

REACTIONS (3)
  - Transplant dysfunction [Unknown]
  - Diabetes mellitus [Unknown]
  - Renal tubular necrosis [Unknown]
